FAERS Safety Report 4649003-2 (Version None)
Quarter: 2005Q2

REPORT INFORMATION
  Report Type: 
  Country: None (occurrence: None)
  Receive Date: 20050429
  Receipt Date: 20050406
  Transmission Date: 20051028
  Serious: Yes (Hospitalization)
  Sender: FDA-Public Use
  Company Number: JP-ROCHE-400890

PATIENT
  Age: 65 Year
  Sex: Male

DRUGS (13)
  1. PANALDINE [Suspect]
     Indication: ANGINA PECTORIS
     Dosage: SECOND INDICATION: CHRONIC ATHEROSCLEROSIS OBLITERANS
     Route: 048
     Dates: start: 20041015, end: 20050307
  2. STOGAR [Suspect]
     Indication: DRUG USE FOR UNKNOWN INDICATION
     Route: 048
     Dates: start: 20020615
  3. NU-LOTAN [Suspect]
     Indication: DRUG USE FOR UNKNOWN INDICATION
     Route: 048
     Dates: start: 20020615
  4. ACECOL [Suspect]
     Indication: DRUG USE FOR UNKNOWN INDICATION
     Route: 048
     Dates: start: 20020615
  5. CALSLOT [Concomitant]
     Route: 048
     Dates: start: 20020615
  6. LASIX [Concomitant]
     Route: 048
     Dates: start: 20020615
  7. CARDENALIN [Concomitant]
     Route: 048
     Dates: start: 20020615
  8. ADALAT [Concomitant]
     Route: 048
     Dates: start: 20020615
  9. SELBEX [Concomitant]
     Route: 048
     Dates: start: 20020615
  10. FERROMIA [Concomitant]
     Route: 048
     Dates: start: 20020615
  11. AMIYU [Concomitant]
     Route: 048
     Dates: start: 20020615
  12. PROCYLIN [Concomitant]
     Route: 048
     Dates: start: 20020615
  13. CALTAN [Concomitant]
     Route: 048
     Dates: start: 20020615

REACTIONS (1)
  - ANAEMIA [None]
